FAERS Safety Report 8481753-2 (Version None)
Quarter: 2012Q3

REPORT INFORMATION
  Report Type: 
  Country: None (occurrence: None)
  Receive Date: 20120702
  Receipt Date: 20120618
  Transmission Date: 20120928
  Serious: Yes (Other)
  Sender: FDA-Public Use
  Company Number: NO-ROCHE-1082399

PATIENT
  Sex: Female

DRUGS (3)
  1. METHOTREXATE [Suspect]
     Indication: WEGENER'S GRANULOMATOSIS
  2. MABTHERA [Suspect]
     Indication: RHEUMATOID ARTHRITIS
     Dates: start: 20080901
  3. MABTHERA [Suspect]
     Dosage: GIVEN AFTER 2 MONTHS FROM THE EVENT

REACTIONS (1)
  - NEUTROPENIA [None]
